FAERS Safety Report 25607142 (Version 1)
Quarter: 2025Q3

REPORT INFORMATION
  Report Type: Spontaneous
  Country: AU (occurrence: AU)
  Receive Date: 20250725
  Receipt Date: 20250725
  Transmission Date: 20251020
  Serious: Yes (Other)
  Sender: REGENERON
  Company Number: AU-BAYER-2025A095355

PATIENT
  Age: 82 Year
  Sex: Male

DRUGS (2)
  1. EYLEA HD [Suspect]
     Active Substance: AFLIBERCEPT
     Indication: Age-related macular degeneration
     Route: 031
  2. EYLEA HD [Suspect]
     Active Substance: AFLIBERCEPT
     Indication: Detachment of retinal pigment epithelium

REACTIONS (3)
  - Visual impairment [Unknown]
  - Retinal pigment epithelial tear [Unknown]
  - Vitreous haemorrhage [Unknown]
